FAERS Safety Report 14846715 (Version 2)
Quarter: 2018Q3

REPORT INFORMATION
  Report Type: Other
  Country: DE (occurrence: IT)
  Receive Date: 20180504
  Receipt Date: 20180709
  Transmission Date: 20181010
  Serious: Yes (Hospitalization)
  Sender: FDA-Public Use
  Company Number: IT-MERZ NORTH AMERICA, INC.-18MRZ-00202

PATIENT
  Age: 64 Year
  Sex: Female

DRUGS (1)
  1. ASCLERA [Suspect]
     Active Substance: POLIDOCANOL
     Indication: SCLEROTHERAPY
     Dosage: 1 DOSAGE FORM
     Route: 042
     Dates: start: 20170303, end: 20170407

REACTIONS (5)
  - Weight increased [Recovered/Resolved]
  - Oedema [Recovered/Resolved]
  - Renal failure [Recovered/Resolved]
  - Proteinuria [Recovered/Resolved]
  - Urine output decreased [Recovered/Resolved]

NARRATIVE: CASE EVENT DATE: 20170421
